FAERS Safety Report 10878700 (Version 2)
Quarter: 2015Q1

REPORT INFORMATION
  Report Type: Spontaneous
  Country: US (occurrence: US)
  Receive Date: 20150302
  Receipt Date: 20150313
  Transmission Date: 20150721
  Serious: Yes (Hospitalization, Other)
  Sender: FDA-Public Use
  Company Number: US-BAXTER-2015BAX011136

PATIENT
  Sex: Female
  Weight: 86.26 kg

DRUGS (2)
  1. DIANEAL LOW CALCIUM PERITONEAL DIALYSIS SOLUTION WITH DEXTROSE [Suspect]
     Active Substance: CALCIUM CHLORIDE\DEXTROSE\MAGNESIUM CHLORIDE\SODIUM CHLORIDE\SODIUM LACTATE
     Indication: CHRONIC KIDNEY DISEASE
     Dosage: 5 LITER BAGS
     Route: 033
     Dates: start: 201405
  2. DIANEAL LOW CALCIUM PERITONEAL DIALYSIS SOLUTION WITH DEXTROSE [Suspect]
     Active Substance: CALCIUM CHLORIDE\DEXTROSE\MAGNESIUM CHLORIDE\SODIUM CHLORIDE\SODIUM LACTATE
     Indication: CHRONIC KIDNEY DISEASE
     Dosage: 5 LITER BAGS
     Route: 033
     Dates: start: 201405

REACTIONS (7)
  - Steal syndrome [Recovered/Resolved]
  - Fluid overload [Not Recovered/Not Resolved]
  - Nausea [Recovering/Resolving]
  - Vomiting [Recovering/Resolving]
  - Arteriovenous fistula site complication [Recovered/Resolved]
  - Visual impairment [Not Recovered/Not Resolved]
  - Ultrafiltration failure [Not Recovered/Not Resolved]

NARRATIVE: CASE EVENT DATE: 201411
